FAERS Safety Report 8416227-8 (Version None)
Quarter: 2012Q2

REPORT INFORMATION
  Report Type: 
  Country: None (occurrence: None)
  Receive Date: 20120530
  Receipt Date: 20120525
  Transmission Date: 20120825
  Serious: Yes (Hospitalization)
  Sender: FDA-Public Use
  Company Number: 2012SP010003

PATIENT
  Age: 83 Year
  Sex: Female

DRUGS (4)
  1. SYCREST (ASENAPINE /05706901/) [Suspect]
     Indication: PRODUCT USED FOR UNKNOWN INDICATION
     Dosage: 5 MG;QD;PO
     Route: 048
     Dates: start: 20110901, end: 20110906
  2. SEROQUEL [Concomitant]
  3. RAMIPRIL [Concomitant]
  4. MARCUMAR [Concomitant]

REACTIONS (3)
  - PARAESTHESIA ORAL [None]
  - ORAL DYSAESTHESIA [None]
  - HYPOAESTHESIA ORAL [None]
